FAERS Safety Report 6110139-0 (Version None)
Quarter: 2009Q1

REPORT INFORMATION
  Report Type: 
  Country: None (occurrence: None)
  Receive Date: 20090306
  Receipt Date: 20090306
  Transmission Date: 20090719
  Serious: No
  Sender: FDA-Public Use
  Company Number: None

PATIENT
  Sex: Male
  Weight: 78.64 kg

DRUGS (15)
  1. ISOSORBIDE MONONITRATE [Suspect]
     Dosage: 30MG TAB.SR 24H 30 MG QHS ORAL
     Route: 048
     Dates: start: 20090206, end: 20090305
  2. AMIODARONE HCL [Concomitant]
  3. ATENOLOL [Concomitant]
  4. COUMADIN [Concomitant]
  5. ECASA (ASPIRIN ENTERIC COATED) [Concomitant]
  6. FLOMAX [Concomitant]
  7. FUROSEMIDE [Concomitant]
  8. K-DUR (KCL SLOW RELEASE) [Concomitant]
  9. LANOXIN [Concomitant]
  10. LEVOXYL [Concomitant]
  11. LISINOPRIL [Concomitant]
  12. NTG (NITROGLYCERIN) [Concomitant]
  13. PLAVIX [Concomitant]
  14. WELCHOL [Concomitant]
  15. ZETIA [Concomitant]

REACTIONS (1)
  - HEADACHE [None]
